FAERS Safety Report 25982944 (Version 2)
Quarter: 2025Q4

REPORT INFORMATION
  Report Type: Report from Study
  Country: US (occurrence: US)
  Receive Date: 20251031
  Receipt Date: 20251209
  Transmission Date: 20260118
  Serious: No
  Sender: DECIPHERA PHARMACEUTICALS
  Company Number: US-DECIPHERA PHARMACEUTICALS LLC-2025US001319

PATIENT
  Age: 62 Year
  Sex: Male

DRUGS (3)
  1. QINLOCK [Suspect]
     Active Substance: RIPRETINIB
     Indication: Metastases to lung
     Dosage: 150 MILLIGRAM, QD
     Dates: start: 202509
  2. QINLOCK [Suspect]
     Active Substance: RIPRETINIB
     Indication: Lung neoplasm malignant
  3. QINLOCK [Suspect]
     Active Substance: RIPRETINIB
     Indication: Gallbladder cancer

REACTIONS (2)
  - Pruritus [Unknown]
  - Product use in unapproved indication [Unknown]

NARRATIVE: CASE EVENT DATE: 20250101
